FAERS Safety Report 11290214 (Version 2)
Quarter: 2015Q3

REPORT INFORMATION
  Report Type: Spontaneous
  Country: CO (occurrence: CO)
  Receive Date: 20150721
  Receipt Date: 20150722
  Transmission Date: 20151125
  Serious: Yes (Hospitalization)
  Sender: FDA-Public Use
  Company Number: CO-ELI_LILLY_AND_COMPANY-CO201507003860

PATIENT
  Age: 25 Year
  Sex: Male

DRUGS (4)
  1. RISPERIDONE. [Concomitant]
     Active Substance: RISPERIDONE
     Dosage: 2 MG, UNKNOWN
     Route: 065
  2. RISPERIDONE. [Concomitant]
     Active Substance: RISPERIDONE
     Dosage: 3 MG, UNKNOWN
     Route: 065
     Dates: start: 20150701
  3. OLANZAPINE. [Suspect]
     Active Substance: OLANZAPINE
     Indication: PRODUCT USED FOR UNKNOWN INDICATION
     Dosage: 20MG, QD
     Dates: start: 20150512
  4. RISPERIDONE. [Concomitant]
     Active Substance: RISPERIDONE
     Dosage: 4 MG, UNKNOWN
     Route: 065
     Dates: start: 201507

REACTIONS (1)
  - Hallucination [Not Recovered/Not Resolved]
